FAERS Safety Report 4639132-1 (Version None)
Quarter: 2005Q2

REPORT INFORMATION
  Report Type: 
  Country: None (occurrence: None)
  Receive Date: 20050418
  Receipt Date: 20050331
  Transmission Date: 20051028
  Serious: Yes (Hospitalization)
  Sender: FDA-Public Use
  Company Number: 2005AC00470

PATIENT
  Age: 29 Year
  Sex: Female
  Weight: 70 kg

DRUGS (6)
  1. PROPOFOL [Suspect]
     Indication: SEDATION
     Dates: start: 20050309, end: 20050314
  2. NORADRENALINE [Concomitant]
  3. CORTICOSTEROIDS [Concomitant]
  4. TAZOCEL [Concomitant]
  5. LINEZOLID [Concomitant]
  6. EPTACOG [Concomitant]

REACTIONS (5)
  - ARRHYTHMIA [None]
  - MYOCARDIAL INFARCTION [None]
  - MYOPATHY [None]
  - PROPOFOL INFUSION SYNDROME [None]
  - RHABDOMYOLYSIS [None]
